FAERS Safety Report 5384375-5 (Version None)
Quarter: 2007Q3

REPORT INFORMATION
  Report Type: 
  Country: None (occurrence: None)
  Receive Date: 20070711
  Receipt Date: 20070427
  Transmission Date: 20080115
  Serious: No
  Sender: FDA-Public Use
  Company Number: US-AMGEN-KDL219072

PATIENT
  Sex: Male
  Weight: 38.7 kg

DRUGS (7)
  1. KINERET [Suspect]
     Indication: JUVENILE ARTHRITIS
     Route: 058
     Dates: start: 20061201
  2. PRILOSEC [Concomitant]
     Dates: start: 20061219, end: 20070202
  3. ANZEMET [Concomitant]
     Dates: start: 20061219
  4. PREVACID [Concomitant]
     Dates: start: 20061219, end: 20061219
  5. POLYETHYLENE GLYCOL [Concomitant]
     Route: 048
     Dates: start: 20061219
  6. UNSPECIFIED MEDICATION [Concomitant]
     Dates: start: 20061219, end: 20061221
  7. CYCLOSERINE [Concomitant]
     Dates: start: 20061219, end: 20070202

REACTIONS (2)
  - ALOPECIA [None]
  - HAIR TEXTURE ABNORMAL [None]
